FAERS Safety Report 10198304 (Version 1)
Quarter: 2014Q2

REPORT INFORMATION
  Report Type: Spontaneous
  Country: US (occurrence: US)
  Receive Date: 20140527
  Receipt Date: 20140527
  Transmission Date: 20141212
  Serious: No
  Sender: FDA-Public Use
  Company Number: US-NOVEN-13US007046

PATIENT
  Sex: Male
  Weight: 17.23 kg

DRUGS (3)
  1. DAYTRANA [Suspect]
     Indication: ATTENTION DEFICIT/HYPERACTIVITY DISORDER
     Dosage: 15 MG, CUT PATCH IN HALF
     Route: 062
  2. DAYTRANA [Suspect]
     Dosage: 15 MG, UNK
     Route: 062
  3. DAYTRANA [Suspect]
     Dosage: 10 MG, UNK
     Route: 062

REACTIONS (8)
  - Abnormal behaviour [Recovered/Resolved]
  - Fatigue [Recovered/Resolved]
  - Aggression [Recovered/Resolved]
  - Mood swings [Recovered/Resolved]
  - Weight decreased [Unknown]
  - Wrong technique in drug usage process [Unknown]
  - Drug prescribing error [Unknown]
  - Off label use [Not Recovered/Not Resolved]
